FAERS Safety Report 7153090-X (Version None)
Quarter: 2010Q4

REPORT INFORMATION
  Report Type: 
  Country: None (occurrence: None)
  Receive Date: 20101213
  Receipt Date: 20101129
  Transmission Date: 20110411
  Serious: Yes (Other)
  Sender: FDA-Public Use
  Company Number: PHHY2010US81269

PATIENT
  Age: 30 Year
  Sex: Female

DRUGS (1)
  1. LEPONEX [Suspect]
     Indication: SCHIZOPHRENIA, PARANOID TYPE
     Dosage: 400 MG, QD

REACTIONS (5)
  - CEREBRAL VENOUS THROMBOSIS [None]
  - FATIGUE [None]
  - HEMIPARESIS [None]
  - IRRITABILITY [None]
  - VOMITING [None]
